FAERS Safety Report 20801215 (Version 2)
Quarter: 2022Q2

REPORT INFORMATION
  Report Type: Spontaneous
  Country: AU (occurrence: AU)
  Receive Date: 20220509
  Receipt Date: 20220602
  Transmission Date: 20220720
  Serious: Yes (Other)
  Sender: FDA-Public Use
  Company Number: AU-STRIDES ARCOLAB LIMITED-2022SP005121

PATIENT
  Age: 7 Decade
  Sex: Male

DRUGS (11)
  1. MYCOPHENOLATE MOFETIL [Suspect]
     Active Substance: MYCOPHENOLATE MOFETIL
     Indication: VEXAS syndrome
     Dosage: UNK
     Route: 065
  2. METHOTREXATE [Suspect]
     Active Substance: METHOTREXATE
     Indication: VEXAS syndrome
     Dosage: UNK
     Route: 065
  3. PREDNISOLONE [Suspect]
     Active Substance: PREDNISOLONE
     Indication: VEXAS syndrome
     Dosage: 5 MILLIGRAM
     Route: 065
  4. PREDNISOLONE [Suspect]
     Active Substance: PREDNISOLONE
     Dosage: 60 MILLIGRAM
     Route: 065
  5. PREDNISOLONE [Suspect]
     Active Substance: PREDNISOLONE
     Dosage: UNK (BELOW 20 MG/DAY)
     Route: 065
     Dates: start: 2021
  6. PREDNISOLONE [Suspect]
     Active Substance: PREDNISOLONE
     Dosage: UNK (15?25 MG/DAY)
     Route: 065
  7. METHYLPREDNISOLONE [Suspect]
     Active Substance: METHYLPREDNISOLONE
     Indication: VEXAS syndrome
     Dosage: 3 DOSAGE FORM
     Route: 065
  8. RITUXIMAB [Concomitant]
     Active Substance: RITUXIMAB
     Indication: VEXAS syndrome
     Dosage: UNK
     Route: 065
  9. TOCILIZUMAB [Concomitant]
     Active Substance: TOCILIZUMAB
     Indication: VEXAS syndrome
     Dosage: UNK
     Route: 065
  10. ADALIMUMAB [Concomitant]
     Active Substance: ADALIMUMAB
     Indication: VEXAS syndrome
     Dosage: UNK
     Route: 065
  11. ETANERCEPT [Concomitant]
     Active Substance: ETANERCEPT
     Indication: VEXAS syndrome
     Dosage: UNK
     Route: 065

REACTIONS (5)
  - Cytopenia [Unknown]
  - Infection [Unknown]
  - Osteopenia [Unknown]
  - Weight increased [Unknown]
  - Off label use [Unknown]
